FAERS Safety Report 10064468 (Version 3)
Quarter: 2014Q3

REPORT INFORMATION
  Report Type: Spontaneous
  Country: US (occurrence: US)
  Receive Date: 20140408
  Receipt Date: 20140819
  Transmission Date: 20150326
  Serious: Yes (Hospitalization, Other)
  Sender: FDA-Public Use
  Company Number: US-BAYER-2014-051828

PATIENT
  Age: 25 Year
  Sex: Female
  Weight: 78.5 kg

DRUGS (1)
  1. MIRENA [Suspect]
     Active Substance: LEVONORGESTREL
     Indication: CONTRACEPTION
     Dosage: 20 MCG/24HR, CONT
     Route: 015
     Dates: start: 20120512, end: 20130404

REACTIONS (9)
  - Genital haemorrhage [None]
  - Abdominal discomfort [None]
  - Depressed mood [None]
  - Emotional distress [None]
  - Drug ineffective [None]
  - Abdominal pain [None]
  - Embedded device [None]
  - Pregnancy with contraceptive device [None]
  - Injury [None]

NARRATIVE: CASE EVENT DATE: 2012
